FAERS Safety Report 8059134-5 (Version None)
Quarter: 2012Q1

REPORT INFORMATION
  Report Type: 
  Country: None (occurrence: None)
  Receive Date: 20120120
  Receipt Date: 20120110
  Transmission Date: 20120608
  Serious: Yes (Hospitalization)
  Sender: FDA-Public Use
  Company Number: US-JNJFOC-20110910443

PATIENT
  Age: 49 Year
  Sex: Female
  Weight: 48 kg

DRUGS (1)
  1. ACETAMINOPHEN/DIPHENHYDRAMINE HCL [Suspect]
     Indication: PRODUCT USED FOR UNKNOWN INDICATION

REACTIONS (2)
  - LOSS OF CONSCIOUSNESS [None]
  - INTENTIONAL OVERDOSE [None]
